FAERS Safety Report 9365378 (Version 5)
Quarter: 2013Q4

REPORT INFORMATION
  Report Type: Spontaneous
  Country: DE (occurrence: DE)
  Receive Date: 20130625
  Receipt Date: 20131128
  Transmission Date: 20140711
  Serious: Yes (Other)
  Sender: FDA-Public Use
  Company Number: DE-AMGEN-DEUSP2013043749

PATIENT
  Age: 88 Year
  Sex: Female

DRUGS (2)
  1. PROLIA [Suspect]
     Indication: OSTEOPOROSIS POSTMENOPAUSAL
     Dosage: 60 MG, FS, UNK
     Route: 058
     Dates: start: 201105, end: 20130523
  2. BISPHOSPHONATES [Concomitant]

REACTIONS (4)
  - Jaw fracture [Unknown]
  - Fistula [Unknown]
  - Fall [Unknown]
  - Osteonecrosis of jaw [Recovering/Resolving]
